FAERS Safety Report 9288596 (Version 1)
Quarter: 2013Q2

REPORT INFORMATION
  Report Type: Spontaneous
  Country: US (occurrence: None)
  Receive Date: 20130513
  Receipt Date: 20130513
  Transmission Date: 20140414
  Serious: Yes (Other)
  Sender: FDA-Public Use
  Company Number: None

PATIENT
  Age: 55 Year
  Sex: Female

DRUGS (1)
  1. GLEEVEC [Suspect]
     Route: 048
     Dates: start: 201011

REACTIONS (6)
  - Teeth brittle [None]
  - Myalgia [None]
  - Bone pain [None]
  - Fatigue [None]
  - Nausea [None]
  - Diarrhoea [None]
